FAERS Safety Report 4578009-7 (Version None)
Quarter: 2005Q1

REPORT INFORMATION
  Report Type: 
  Country: None (occurrence: None)
  Receive Date: 20050209
  Receipt Date: 20050131
  Transmission Date: 20050727
  Serious: Yes (Hospitalization)
  Sender: FDA-Public Use
  Company Number: 2005021943

PATIENT
  Age: 15 Year
  Sex: Male

DRUGS (5)
  1. AZITHROMYCIN [Suspect]
     Indication: UPPER RESPIRATORY TRACT INFLAMMATION
     Dosage: 500 MG (UNK, 1 D), ORAL
     Route: 048
     Dates: start: 20050127, end: 20050129
  2. LOXOPROFEN SODIUM (LOXOPROFEN SODIUM) [Concomitant]
  3. TRANEXAMIC ACID (TRANEXAMIC ACID) [Concomitant]
  4. DEXTROMETHORPHAN HYDROBROMIDE (DEXTROMETHORPHAN HYDROBROMIDE) [Concomitant]
  5. AMBROXOL HYDROCHLORIDE (AMBROXOL  HYDROCHLORIDE) [Concomitant]

REACTIONS (2)
  - MEASLES [None]
  - MOUTH ULCERATION [None]
